FAERS Safety Report 10102813 (Version 1)
Quarter: 2014Q2

REPORT INFORMATION
  Report Type: Spontaneous
  Country: US (occurrence: US)
  Receive Date: 20140424
  Receipt Date: 20140424
  Transmission Date: 20141212
  Serious: No
  Sender: FDA-Public Use
  Company Number: US-BRISTOL-MYERS SQUIBB COMPANY-20552469

PATIENT
  Age: 72 Year
  Sex: Female

DRUGS (5)
  1. ELIQUIS [Suspect]
     Indication: ATRIAL FIBRILLATION
     Dates: start: 201312
  2. SOTALOL [Concomitant]
  3. METHOTREXATE [Concomitant]
  4. PRILOSEC [Concomitant]
  5. FOLIC ACID [Concomitant]

REACTIONS (1)
  - Arthritis [Unknown]
